FAERS Safety Report 9379913 (Version 2)
Quarter: 2013Q3

REPORT INFORMATION
  Report Type: Spontaneous
  Country: US (occurrence: US)
  Receive Date: 20130702
  Receipt Date: 20130820
  Transmission Date: 20140515
  Serious: Yes (Hospitalization, Other)
  Sender: FDA-Public Use
  Company Number: US-JNJFOC-20130619269

PATIENT
  Sex: Male
  Weight: 143.34 kg

DRUGS (19)
  1. XARELTO [Suspect]
     Indication: CEREBROVASCULAR ACCIDENT PROPHYLAXIS
     Route: 048
     Dates: start: 20130207
  2. XARELTO [Suspect]
     Indication: ATRIAL FIBRILLATION
     Route: 048
     Dates: start: 20130207
  3. METFORMIN HYDROCHLORIDE [Concomitant]
     Route: 048
     Dates: start: 20130207
  4. TRAMADOL HYDROCHLORIDE [Concomitant]
     Dosage: AS NEEDED
     Route: 048
     Dates: start: 20130207
  5. ANDROGEL 1 % [Concomitant]
     Route: 062
     Dates: start: 20121105
  6. ASPIRIN [Concomitant]
     Route: 048
     Dates: start: 20130215
  7. AVODART [Concomitant]
     Route: 048
     Dates: start: 20121105
  8. COREG [Concomitant]
     Dosage: WITH MORNING AND EVENING MEAL
     Route: 048
     Dates: start: 20130207
  9. FLEXERIL [Concomitant]
     Route: 065
     Dates: start: 20130207
  10. GLUCOTROL [Concomitant]
     Route: 048
     Dates: start: 20130410
  11. LANTUS SOLOSTAR [Concomitant]
     Indication: TYPE 2 DIABETES MELLITUS
     Dosage: 100 U/ML
     Route: 058
     Dates: start: 20130517
  12. LIPITOR [Concomitant]
     Route: 048
     Dates: start: 20130625
  13. LISINOPRIL [Concomitant]
     Indication: HYPOTENSION
     Route: 048
     Dates: start: 20130517
  14. MAGNESIUM [Concomitant]
     Route: 065
  15. NEXIUM [Concomitant]
     Indication: ABDOMINAL PAIN
     Route: 048
     Dates: start: 20130410
  16. PLAVIX [Concomitant]
     Route: 048
     Dates: start: 20130207
  17. SPIRONOLACTONE [Concomitant]
     Route: 048
     Dates: start: 20130625
  18. VICTOZA [Concomitant]
     Indication: TYPE 2 DIABETES MELLITUS
     Route: 058
     Dates: start: 20130517
  19. VITAMIN D3 [Concomitant]
     Route: 065
     Dates: start: 20130410

REACTIONS (2)
  - Pancreatitis [Unknown]
  - Hepatic cirrhosis [Unknown]
